FAERS Safety Report 19958585 (Version 1)
Quarter: 2021Q4

REPORT INFORMATION
  Report Type: Spontaneous
  Country: GB (occurrence: GB)
  Receive Date: 20211015
  Receipt Date: 20211015
  Transmission Date: 20220303
  Serious: Yes (Other)
  Sender: FDA-Public Use
  Company Number: GB-CLOVIS ONCOLOGY-CLO-2021-001513

PATIENT

DRUGS (1)
  1. RUBRACA [Suspect]
     Active Substance: RUCAPARIB CAMSYLATE
     Indication: Ovarian cancer recurrent
     Dosage: 600 MILLIGRAM, BID

REACTIONS (3)
  - Sepsis [Unknown]
  - Tooth infection [Unknown]
  - Tooth abscess [Unknown]
